FAERS Safety Report 9157767 (Version 2)
Quarter: 2013Q1

REPORT INFORMATION
  Report Type: Spontaneous
  Country: FR (occurrence: FR)
  Receive Date: 20130312
  Receipt Date: 20130320
  Transmission Date: 20140127
  Serious: Yes (Hospitalization, Other)
  Sender: FDA-Public Use
  Company Number: FR-PFIZER INC-2013080389

PATIENT
  Age: 17 Year
  Sex: Male

DRUGS (5)
  1. SOLANTYL [Suspect]
     Indication: EPILEPSY
     Dosage: 600 MG, UNK
     Dates: start: 197208
  2. SOLANTYL [Suspect]
     Dosage: 300 MG, UNK
  3. SOLANTYL [Suspect]
     Dosage: 600 MG, UNK
     Dates: start: 19721006, end: 19721011
  4. GARDENAL [Concomitant]
     Indication: EPILEPSY
     Dosage: 35 CG, UNK
     Dates: start: 197208
  5. GARDENAL [Concomitant]
     Dosage: 15 CG, UNK

REACTIONS (22)
  - Toxicity to various agents [Recovering/Resolving]
  - Ophthalmoplegia [Recovering/Resolving]
  - Cerebellar syndrome [Recovering/Resolving]
  - Vision blurred [None]
  - Visual impairment [None]
  - Diplopia [None]
  - Conjunctivitis [None]
  - Dysphagia [None]
  - Bedridden [None]
  - Somnolence [None]
  - Gingival hyperplasia [None]
  - Mydriasis [None]
  - Nystagmus [None]
  - IIIrd nerve paralysis [None]
  - Extensor plantar response [None]
  - Parinaud syndrome [None]
  - Binocular eye movement disorder [None]
  - Strabismus [None]
  - Gaze palsy [None]
  - Drug hypersensitivity [None]
  - Cerebellar atrophy [None]
  - Encephalitis [None]
